FAERS Safety Report 5729880-4 (Version None)
Quarter: 2008Q2

REPORT INFORMATION
  Report Type: 
  Country: None (occurrence: None)
  Receive Date: 20080502
  Receipt Date: 20080417
  Transmission Date: 20081010
  Serious: Yes (Hospitalization)
  Sender: FDA-Public Use
  Company Number: 2008BM000067

PATIENT
  Age: 15 Year
  Sex: Male
  Weight: 22 kg

DRUGS (9)
  1. NAGLAZYME [Suspect]
     Indication: MUCOPOLYSACCHARIDOSIS VI
     Dosage: 1 MG/KG; QW; IV
     Route: 042
     Dates: start: 20061101, end: 20080320
  2. DIAMOX /00016901/ (CON.) [Concomitant]
  3. ZANTAC (CON.) [Concomitant]
  4. LORATADINE (CON.) [Concomitant]
  5. MONTELUKAST SODIUM (CON.) [Concomitant]
  6. FLUVOXAMINE MALEATE (CON.) [Concomitant]
  7. CEFAZOLIN (CON.) [Concomitant]
  8. MIRALAX (CON.) [Concomitant]
  9. MOTRIN (CON.) [Concomitant]

REACTIONS (21)
  - ANAEMIA [None]
  - BACTERIA URINE IDENTIFIED [None]
  - BLOOD POTASSIUM DECREASED [None]
  - CALCULUS URETERIC [None]
  - CATHETER SITE ERYTHEMA [None]
  - CONSTIPATION [None]
  - EAR INFECTION [None]
  - HYDRONEPHROSIS [None]
  - INFUSION SITE REACTION [None]
  - NEPHROLITHIASIS [None]
  - PLEURAL EFFUSION [None]
  - PROTEIN URINE PRESENT [None]
  - SEPSIS [None]
  - SHUNT MALFUNCTION [None]
  - STAPHYLOCOCCAL INFECTION [None]
  - ULTRASOUND BLADDER ABNORMAL [None]
  - UPPER RESPIRATORY TRACT INFECTION [None]
  - URETERIC OBSTRUCTION [None]
  - URINE KETONE BODY ABSENT [None]
  - VOMITING [None]
  - WHITE BLOOD CELLS URINE POSITIVE [None]
